FAERS Safety Report 15897237 (Version 5)
Quarter: 2019Q2

REPORT INFORMATION
  Report Type: Spontaneous
  Country: JP (occurrence: JP)
  Receive Date: 20190131
  Receipt Date: 20190531
  Transmission Date: 20190711
  Serious: Yes (Other)
  Sender: FDA-Public Use
  Company Number: JP-ALLERGAN-1904602US

PATIENT
  Sex: Female
  Weight: 70 kg

DRUGS (3)
  1. BOTOX [Suspect]
     Active Substance: ONABOTULINUMTOXINA
     Indication: MUSCLE SPASTICITY
     Dosage: 350 UNITS, SINGLE
     Route: 030
     Dates: start: 20190418, end: 20190418
  2. BOTOX [Suspect]
     Active Substance: ONABOTULINUMTOXINA
     Dosage: ONCE IN 2 TO 3 MONTHS
     Route: 030
  3. BOTOX [Suspect]
     Active Substance: ONABOTULINUMTOXINA
     Dosage: UNK, SINGLE
     Route: 030
     Dates: start: 20180721, end: 20180721

REACTIONS (31)
  - Hemiplegia [Unknown]
  - Myocardial infarction [Unknown]
  - Weight increased [Unknown]
  - Vertigo [Recovered/Resolved]
  - Cerebral infarction [Unknown]
  - Fall [Unknown]
  - Wound [Unknown]
  - Sleep disorder due to a general medical condition [Unknown]
  - Pyrexia [Recovered/Resolved]
  - Pain in extremity [Unknown]
  - Injection site mass [Unknown]
  - Muscular weakness [Unknown]
  - Arthropathy [Unknown]
  - Hemianopia [Unknown]
  - Wound haemorrhage [Recovered/Resolved]
  - Balance disorder [Unknown]
  - Movement disorder [Unknown]
  - Motor dysfunction [Unknown]
  - Gait disturbance [Unknown]
  - Generalised oedema [Unknown]
  - Thermal burn [Recovering/Resolving]
  - Thermohypoaesthesia [Unknown]
  - Hypoaesthesia [Unknown]
  - Haemorrhage subepidermal [Unknown]
  - Nasopharyngitis [Recovered/Resolved]
  - Hypophagia [Unknown]
  - Fatigue [Recovered/Resolved]
  - Vomiting [Not Recovered/Not Resolved]
  - Blister [Recovering/Resolving]
  - Cough [Not Recovered/Not Resolved]
  - Abdominal pain upper [Not Recovered/Not Resolved]

NARRATIVE: CASE EVENT DATE: 201901
